FAERS Safety Report 21922732 (Version 1)
Quarter: 2023Q1

REPORT INFORMATION
  Report Type: Spontaneous
  Country: MY (occurrence: MY)
  Receive Date: 20230128
  Receipt Date: 20230128
  Transmission Date: 20230417
  Serious: Yes (Other)
  Sender: FDA-Public Use
  Company Number: MY-MLMSERVICE-2023011240349061

PATIENT
  Age: 29 Year
  Sex: Male

DRUGS (2)
  1. CISPLATIN [Suspect]
     Active Substance: CISPLATIN
     Indication: Metastases to lymph nodes
     Dosage: TWO DOSES OF WEEKLY CISPLATIN THERAPY
  2. CISPLATIN [Suspect]
     Active Substance: CISPLATIN
     Indication: Lip squamous cell carcinoma
     Dosage: TWO DOSES OF WEEKLY CISPLATIN THERAPY

REACTIONS (1)
  - Systemic toxicity [Unknown]
